FAERS Safety Report 17720175 (Version 1)
Quarter: 2020Q2

REPORT INFORMATION
  Report Type: Spontaneous
  Country: US (occurrence: US)
  Receive Date: 20200428
  Receipt Date: 20200428
  Transmission Date: 20200714
  Serious: Yes (Other)
  Sender: FDA-Public Use
  Company Number: US-ROCHE-2305065

PATIENT
  Sex: Male

DRUGS (13)
  1. FOLINIC ACID [Concomitant]
     Active Substance: LEUCOVORIN
     Indication: ADENOCARCINOMA OF COLON
  2. AVASTIN [Suspect]
     Active Substance: BEVACIZUMAB
     Indication: METASTASES TO LUNG
     Dosage: FOLFIRI WITH BEVACIZUMAB
     Route: 065
     Dates: start: 201809
  3. IRINOTECAN [Concomitant]
     Active Substance: IRINOTECAN
     Indication: METASTASES TO LUNG
     Dosage: FOLFIRI WITH BEVACIZUMAB
     Route: 065
     Dates: start: 201809
  4. FOLINIC ACID [Concomitant]
     Active Substance: LEUCOVORIN
     Indication: DISEASE PROGRESSION
  5. IRINOTECAN [Concomitant]
     Active Substance: IRINOTECAN
     Indication: ADENOCARCINOMA OF COLON
  6. FLUOROURACIL. [Concomitant]
     Active Substance: FLUOROURACIL
     Indication: DISEASE PROGRESSION
  7. LONSURF [Concomitant]
     Active Substance: TIPIRACIL HYDROCHLORIDE\TRIFLURIDINE
     Indication: METASTASES TO LIVER
     Dosage: STARTED AND IS IN MIDST OF C#2
     Route: 065
  8. FLUOROURACIL. [Concomitant]
     Active Substance: FLUOROURACIL
     Indication: ADENOCARCINOMA OF COLON
  9. AVASTIN [Suspect]
     Active Substance: BEVACIZUMAB
     Indication: DISEASE PROGRESSION
  10. AVASTIN [Suspect]
     Active Substance: BEVACIZUMAB
     Indication: ADENOCARCINOMA OF COLON
  11. FOLINIC ACID [Concomitant]
     Active Substance: LEUCOVORIN
     Indication: METASTASES TO LUNG
     Dosage: FOLFIRI WITH BEVACIZUMAB
     Route: 065
     Dates: start: 201809
  12. FLUOROURACIL. [Concomitant]
     Active Substance: FLUOROURACIL
     Indication: METASTASES TO LUNG
     Dosage: FOLFIRI WITH BEVACIZUMAB
     Route: 065
     Dates: start: 201809
  13. IRINOTECAN [Concomitant]
     Active Substance: IRINOTECAN
     Indication: DISEASE PROGRESSION

REACTIONS (3)
  - Neutropenia [Unknown]
  - Fatigue [Unknown]
  - Rosacea [Unknown]
